FAERS Safety Report 4274658-4 (Version None)
Quarter: 2004Q1

REPORT INFORMATION
  Report Type: 
  Country: None (occurrence: None)
  Receive Date: 20040115
  Receipt Date: 20040106
  Transmission Date: 20041129
  Serious: No
  Sender: FDA-Public Use
  Company Number: 03P-167-0244108-00

PATIENT
  Sex: Male

DRUGS (4)
  1. KALETRA [Suspect]
     Dosage: 6 CAPSULE, 1 IN 1 D, PER ORAL
     Route: 048
     Dates: start: 20031121
  2. KALETRA [Suspect]
     Dosage: 6 CAPSULE, 1 IN 1 D, PER ORAL
     Route: 048
     Dates: start: 20031208
  3. TENOFOVIR [Suspect]
     Dates: start: 20031121
  4. LAMIVUDINE [Suspect]
     Dates: start: 20031121

REACTIONS (1)
  - ERYTHEMA MULTIFORME [None]
